FAERS Safety Report 20036172 (Version 1)
Quarter: 2021Q4

REPORT INFORMATION
  Report Type: Other
  Country: JP (occurrence: JP)
  Receive Date: 20211105
  Receipt Date: 20211105
  Transmission Date: 20220303
  Serious: Yes (Hospitalization, Other)
  Sender: FDA-Public Use
  Company Number: JP-CHUGAI-A2020041579ROCHE

PATIENT
  Age: 59 Year

DRUGS (9)
  1. ATEZOLIZUMAB [Suspect]
     Active Substance: ATEZOLIZUMAB
     Indication: Non-small cell lung cancer
     Dosage: DOSE INTERVAL UNCERTAINTY
     Route: 041
     Dates: start: 20200827
  2. BEVACIZUMAB [Suspect]
     Active Substance: BEVACIZUMAB
     Indication: Non-small cell lung cancer
     Dosage: DOSE INTERVAL UNCERTAINTY
     Route: 041
     Dates: start: 20200827
  3. CARBOPLATIN [Suspect]
     Active Substance: CARBOPLATIN
     Indication: Non-small cell lung cancer
     Dosage: DOSE INTERVAL UNCERTAINTY
     Route: 041
     Dates: start: 20200827
  4. PACLITAXEL [Suspect]
     Active Substance: PACLITAXEL
     Indication: Non-small cell lung cancer
     Dosage: DOSE INTERVAL UNCERTAINTY
     Route: 041
     Dates: start: 20200827
  5. OXYCODONE [Concomitant]
     Active Substance: OXYCODONE
     Indication: Non-small cell lung cancer
     Route: 048
     Dates: start: 20200107
  6. CELECOXIB [Concomitant]
     Active Substance: CELECOXIB
     Indication: Non-small cell lung cancer
     Route: 048
     Dates: start: 20200117
  7. SYMPROIC [Concomitant]
     Active Substance: NALDEMEDINE
     Indication: Constipation
     Route: 048
     Dates: start: 20190514
  8. SENNOSIDES [Concomitant]
     Active Substance: SENNOSIDES
     Indication: Constipation
     Route: 048
     Dates: start: 20190319
  9. METOCLOPRAMIDE [Concomitant]
     Active Substance: METOCLOPRAMIDE
     Indication: Prophylaxis
     Dosage: AT THE SICKNESS FEELING
     Route: 048
     Dates: start: 20200829

REACTIONS (12)
  - Bacterial infection [Not Recovered/Not Resolved]
  - Febrile neutropenia [Recovered/Resolved]
  - Hyperkalaemia [Unknown]
  - Nausea [Unknown]
  - Stomatitis [Unknown]
  - Rash [Unknown]
  - Skin exfoliation [Unknown]
  - Malaise [Unknown]
  - Nausea [Unknown]
  - Decreased appetite [Unknown]
  - Malaise [Unknown]
  - Alopecia [Unknown]

NARRATIVE: CASE EVENT DATE: 20200828
